FAERS Safety Report 6057996-4 (Version None)
Quarter: 2009Q1

REPORT INFORMATION
  Report Type: 
  Country: None (occurrence: None)
  Receive Date: 20090129
  Receipt Date: 20090122
  Transmission Date: 20090719
  Serious: Yes (Hospitalization)
  Sender: FDA-Public Use
  Company Number: FR-ABBOTT-09P-056-0499429-00

PATIENT
  Sex: Female

DRUGS (5)
  1. NORVIR [Suspect]
     Indication: HIV INFECTION
     Route: 048
     Dates: start: 20000516, end: 20061101
  2. BROMOCRIPTINE [Interacting]
     Indication: SUPPRESSED LACTATION
     Route: 048
     Dates: start: 20061029, end: 20061029
  3. DIHYDROERGOCRYPTINE, CAFEINE [Interacting]
     Indication: SUPPRESSED LACTATION
     Route: 048
     Dates: start: 20061030, end: 20061119
  4. INDINIVIR SULFATE [Interacting]
     Indication: HIV INFECTION
     Route: 048
     Dates: start: 19980915, end: 20061101
  5. LAMIVUDINE AND ZIDOVUDINE [Concomitant]
     Indication: HIV INFECTION
     Dates: start: 19990216, end: 20061101

REACTIONS (7)
  - DRY MOUTH [None]
  - HEADACHE [None]
  - HYPOTENSION [None]
  - MALAISE [None]
  - NAUSEA [None]
  - VERTIGO [None]
  - VOMITING [None]
